FAERS Safety Report 5549807-8 (Version None)
Quarter: 2007Q4

REPORT INFORMATION
  Report Type: 
  Country: None (occurrence: None)
  Receive Date: 20071207
  Receipt Date: 20071207
  Transmission Date: 20080405
  Serious: Yes (Hospitalization, Disabling, Other)
  Sender: FDA-Public Use
  Company Number: None

PATIENT
  Age: 65 Year
  Sex: Male
  Weight: 85.2762 kg

DRUGS (1)
  1. LEVAQUIN [Suspect]
     Indication: UROLOGICAL EXAMINATION
     Dosage: 750MG DAILY PO
     Route: 048
     Dates: start: 20071016, end: 20071019

REACTIONS (5)
  - CONDITION AGGRAVATED [None]
  - MUSCLE INJURY [None]
  - RHEUMATOID ARTHRITIS [None]
  - ROTATOR CUFF SYNDROME [None]
  - TENDON RUPTURE [None]
